FAERS Safety Report 16625718 (Version 1)
Quarter: 2019Q3

REPORT INFORMATION
  Report Type: Spontaneous
  Country: US (occurrence: US)
  Receive Date: 20190724
  Receipt Date: 20190724
  Transmission Date: 20191004
  Serious: Yes (Congenital Anomaly, Other)
  Sender: FDA-Public Use
  Company Number: US-ENDO PHARMACEUTICALS INC-2019-106622

PATIENT
  Age: 0 Year
  Sex: Female

DRUGS (2)
  1. PRENATAL VITAMINS                  /02014401/ [Concomitant]
     Active Substance: VITAMINS
     Indication: PRODUCT USED FOR UNKNOWN INDICATION
  2. CLOMIPHENE CITRATE. [Suspect]
     Active Substance: CLOMIPHENE CITRATE
     Indication: OVULATION DISORDER
     Dosage: UNK UNKNOWN, UNKNOWN
     Route: 064

REACTIONS (1)
  - Ovarian cyst [Unknown]

NARRATIVE: CASE EVENT DATE: 20190513
